FAERS Safety Report 19075113 (Version 1)
Quarter: 2021Q1

REPORT INFORMATION
  Report Type: Spontaneous
  Country: US (occurrence: US)
  Receive Date: 20210330
  Receipt Date: 20210330
  Transmission Date: 20210420
  Serious: No
  Sender: FDA-Public Use
  Company Number: US-ROCHE-2549649

PATIENT
  Age: 60 Year
  Sex: Female
  Weight: 41.77 kg

DRUGS (1)
  1. ERIVEDGE [Suspect]
     Active Substance: VISMODEGIB
     Indication: BASAL CELL CARCINOMA
     Dosage: ONGOING: NO
     Route: 048
     Dates: start: 201910, end: 201912

REACTIONS (4)
  - Ageusia [Recovering/Resolving]
  - Weight decreased [Unknown]
  - Fatigue [Unknown]
  - Alopecia [Not Recovered/Not Resolved]

NARRATIVE: CASE EVENT DATE: 201911
